FAERS Safety Report 20734771 (Version 1)
Quarter: 2022Q2

REPORT INFORMATION
  Report Type: Spontaneous
  Country: US (occurrence: US)
  Receive Date: 20220421
  Receipt Date: 20220421
  Transmission Date: 20220720
  Serious: No
  Sender: FDA-Public Use
  Company Number: US-BAYER-2022A050663

PATIENT
  Age: 70 Year
  Sex: Male

DRUGS (4)
  1. CLARITIN [Suspect]
     Active Substance: LORATADINE
     Indication: Hypersensitivity
     Dosage: 1 DF
     Route: 048
  2. CLARITIN [Suspect]
     Active Substance: LORATADINE
     Indication: Nasopharyngitis
  3. CARVEDILOL [Suspect]
     Active Substance: CARVEDILOL
  4. ENTRESTO [Suspect]
     Active Substance: SACUBITRIL\VALSARTAN

REACTIONS (4)
  - Drug interaction [Unknown]
  - Nausea [Recovered/Resolved]
  - Vomiting [Recovered/Resolved]
  - Dizziness [Recovered/Resolved]
